FAERS Safety Report 4499130-8 (Version None)
Quarter: 2004Q4

REPORT INFORMATION
  Report Type: 
  Country: None (occurrence: None)
  Receive Date: 20041110
  Receipt Date: 20041110
  Transmission Date: 20050328
  Serious: Yes (Other)
  Sender: FDA-Public Use
  Company Number: None

PATIENT

DRUGS (1)
  1. OXYCODONE 10/650 [Suspect]
     Indication: SPINAL COMPRESSION FRACTURE
     Dosage: 1 PO Q 4 H PRN
     Route: 048
     Dates: start: 20041016, end: 20041029

REACTIONS (2)
  - DRUG INEFFECTIVE [None]
  - PHARMACEUTICAL PRODUCT COMPLAINT [None]
